FAERS Safety Report 7942037-1 (Version None)
Quarter: 2011Q4

REPORT INFORMATION
  Report Type: 
  Country: None (occurrence: None)
  Receive Date: 20111122
  Receipt Date: 20111122
  Transmission Date: 20120403
  Serious: Yes (Hospitalization)
  Sender: FDA-Public Use
  Company Number: None

PATIENT
  Age: 58 Year
  Sex: Male
  Weight: 88.6 kg

DRUGS (10)
  1. ARMODAFINIL [Suspect]
     Indication: GLIOBLASTOMA MULTIFORME
     Dosage: 150MG/DAY
     Dates: start: 20110912, end: 20111025
  2. TEMODAR [Concomitant]
  3. NEURONTIN [Concomitant]
  4. KLONOPIN [Concomitant]
  5. KEPPRA [Concomitant]
  6. ALTACE [Concomitant]
  7. ZOFRAN [Concomitant]
  8. IBUPROFEN (ADVIL) [Concomitant]
  9. M.V.I. [Concomitant]
  10. COLACE [Concomitant]

REACTIONS (4)
  - VIRAL INFECTION [None]
  - BACTERIAL INFECTION [None]
  - PYREXIA [None]
  - SEPSIS [None]
